FAERS Safety Report 22328768 (Version 1)
Quarter: 2023Q2

REPORT INFORMATION
  Report Type: Spontaneous
  Country: BE (occurrence: BE)
  Receive Date: 20230517
  Receipt Date: 20230517
  Transmission Date: 20230721
  Serious: Yes (Death)
  Sender: FDA-Public Use
  Company Number: BE-TEVA-2023-BE-2886754

PATIENT
  Sex: Female

DRUGS (3)
  1. ALPRAZOLAM [Suspect]
     Active Substance: ALPRAZOLAM
     Indication: Intentional overdose
     Route: 065
  2. FENTANYL [Suspect]
     Active Substance: FENTANYL
     Indication: Intentional overdose
     Route: 065
  3. Estetrol/drospirenone [Concomitant]
     Indication: Oral contraception
     Dosage: FOR 28 DAYS, PLANNED FOR UP TO 13 CYCLES
     Route: 048

REACTIONS (1)
  - Intentional overdose [Fatal]
